FAERS Safety Report 9675721 (Version 1)
Quarter: 2013Q4

REPORT INFORMATION
  Report Type: Report from Study
  Country: US (occurrence: US)
  Receive Date: 20131107
  Receipt Date: 20131107
  Transmission Date: 20140711
  Serious: Yes (Other)
  Sender: FDA-Public Use
  Company Number: US-ABBVIE-13P-163-1162869-00

PATIENT
  Sex: Male

DRUGS (3)
  1. HUMIRA [Suspect]
     Indication: CROHN^S DISEASE
  2. HUMIRA [Suspect]
     Dates: start: 201309
  3. REMICADE [Suspect]
     Dates: start: 201306

REACTIONS (7)
  - Peripheral vascular disorder [Recovering/Resolving]
  - Crohn^s disease [Recovering/Resolving]
  - Crohn^s disease [Recovering/Resolving]
  - Arthritis [Recovering/Resolving]
  - Toxicity to various agents [Unknown]
  - Local swelling [Recovering/Resolving]
  - Pain in extremity [Recovering/Resolving]
